FAERS Safety Report 4490895-8 (Version None)
Quarter: 2004Q4

REPORT INFORMATION
  Report Type: 
  Country: None (occurrence: None)
  Receive Date: 20041027
  Receipt Date: 20041012
  Transmission Date: 20050328
  Serious: Yes (Death, Hospitalization)
  Sender: FDA-Public Use
  Company Number: 2004233073JP

PATIENT
  Age: 69 Year
  Sex: Male
  Weight: 55 kg

DRUGS (4)
  1. FARMORUBICIN (EPIRUBICIN HYDROCHLORIDE) POWDER, STERILE [Suspect]
     Indication: GASTRIC CANCER
     Dosage: 20 MG, WEEKLY, INTRA-ARTERIAL
     Route: 013
     Dates: start: 20021129, end: 20030521
  2. FLUOROURACIL [Suspect]
     Indication: GASTRIC CANCER
     Dosage: 250 MG, WEEKLY, INTRA-ARTERIAL
     Route: 013
     Dates: start: 20021129, end: 20030521
  3. TS-1 (TEGAFUR, GIMERACIL, OTERACIL POTASSIUM) [Suspect]
     Indication: GASTRIC CANCER
     Dosage: 20 MG QID, CYCLIC 21, ORAL
     Route: 048
     Dates: start: 20030603, end: 20030811
  4. MITOMYCIN C [Concomitant]

REACTIONS (10)
  - ALANINE AMINOTRANSFERASE INCREASED [None]
  - ASPARTATE AMINOTRANSFERASE INCREASED [None]
  - BLOOD ALKALINE PHOSPHATASE INCREASED [None]
  - BLOOD BILIRUBIN INCREASED [None]
  - BLOOD LACTATE DEHYDROGENASE INCREASED [None]
  - CHOLANGITIS SCLEROSING [None]
  - CHOLESTASIS [None]
  - HEPATIC FAILURE [None]
  - MARKEDLY REDUCED DIETARY INTAKE [None]
  - METASTASES TO LUNG [None]
